FAERS Safety Report 7739180-9 (Version None)
Quarter: 2011Q3

REPORT INFORMATION
  Report Type: 
  Country: None (occurrence: None)
  Receive Date: 20110909
  Receipt Date: 20110825
  Transmission Date: 20111222
  Serious: Yes (Other)
  Sender: FDA-Public Use
  Company Number: US-JNJFOC-20110901541

PATIENT
  Sex: Male
  Weight: 65.77 kg

DRUGS (2)
  1. DURAGESIC-100 [Suspect]
     Indication: BACK PAIN
     Route: 062
     Dates: start: 20020101
  2. OXYCODONE HCL [Concomitant]
     Indication: BACK PAIN
     Route: 048

REACTIONS (3)
  - TOOTH DISORDER [None]
  - TEETH BRITTLE [None]
  - TOOTH DISCOLOURATION [None]
